FAERS Safety Report 10809689 (Version 1)
Quarter: 2015Q1

REPORT INFORMATION
  Report Type: Spontaneous
  Country: US (occurrence: None)
  Receive Date: 20150213
  Receipt Date: 20150213
  Transmission Date: 20150721
  Serious: Yes (Disabling)
  Sender: FDA-Public Use
  Company Number: None

PATIENT
  Age: 55 Year
  Sex: Female
  Weight: 56.7 kg

DRUGS (2)
  1. HYDROCODONE [Concomitant]
     Active Substance: HYDROCODONE
  2. XARELTO [Suspect]
     Active Substance: RIVAROXABAN
     Indication: THROMBOSIS PROPHYLAXIS
     Dosage: 10 MG TABLET, 1 PILL, ONCE DAILY, MOUTH
     Route: 048
     Dates: start: 20150109, end: 20150110

REACTIONS (9)
  - Muscle spasms [None]
  - Pain in extremity [None]
  - Feeling abnormal [None]
  - Pain [None]
  - Epistaxis [None]
  - Musculoskeletal stiffness [None]
  - Migraine [None]
  - No therapeutic response [None]
  - Blood pressure increased [None]

NARRATIVE: CASE EVENT DATE: 20150109
